FAERS Safety Report 5705245-6 (Version None)
Quarter: 2008Q2

REPORT INFORMATION
  Report Type: 
  Country: None (occurrence: None)
  Receive Date: 20080410
  Receipt Date: 20080326
  Transmission Date: 20081010
  Serious: Yes (Other)
  Sender: FDA-Public Use
  Company Number: GXKR2008FR03040

PATIENT
  Age: 57 Year
  Sex: Female

DRUGS (2)
  1. AMOXICILLIN               (AMOXICILLIN TRIHYDRATE) UNKNOWN [Suspect]
     Indication: ANTIBIOTIC THERAPY
     Dosage: 1 G, BID, ORAL
     Route: 048
     Dates: start: 20080131, end: 20080201
  2. MAXILASE               (AMYLASE) SYRUP [Concomitant]

REACTIONS (1)
  - ANGIOEDEMA [None]
